FAERS Safety Report 7132182-5 (Version None)
Quarter: 2010Q4

REPORT INFORMATION
  Report Type: 
  Country: None (occurrence: None)
  Receive Date: 20101202
  Receipt Date: 20101129
  Transmission Date: 20110411
  Serious: Yes (Life-Threatening)
  Sender: FDA-Public Use
  Company Number: DE-NOVOPROD-319126

PATIENT
  Age: 62 Year
  Sex: Female
  Weight: 87 kg

DRUGS (4)
  1. ACTRAPID [Suspect]
     Indication: TYPE 1 DIABETES MELLITUS
     Route: 058
  2. CLARITHROMYCIN [Suspect]
     Indication: BRONCHITIS
     Dosage: DAILY DOSE: 2 DF DOSAGE FORM EVERY DAY
     Route: 048
     Dates: start: 20100406, end: 20100407
  3. ATENOLOL [Concomitant]
     Indication: HYPERTENSION
     Dosage: DAILY DOSE: 50 MG MILLIGRAM(S) EVERY DAY
     Route: 048
  4. EFEROX 100 [Concomitant]
     Indication: GOITRE
     Dosage: DAILY DOSE: 1 DF DOSAGE FORM EVERY DAY
     Route: 048

REACTIONS (2)
  - DRUG INTERACTION [None]
  - HYPOGLYCAEMIA [None]
